FAERS Safety Report 8741927 (Version 3)
Quarter: 2012Q4

REPORT INFORMATION
  Report Type: 
  Country: JP (occurrence: JP)
  Receive Date: 20120824
  Receipt Date: 20120921
  Transmission Date: 20130627
  Serious: Yes (Hospitalization)
  Sender: FDA-Public Use
  Company Number: JP-UCBSA-063972

PATIENT
  Age: 75 Year
  Sex: Male

DRUGS (4)
  1. E KEPPRA [Suspect]
     Route: 048
     Dates: start: 20120621, end: 20120802
  2. DEPAKENE-R [Concomitant]
     Indication: STATUS EPILEPTICUS
     Route: 048
  3. ORIVATE [Concomitant]
     Route: 048
  4. PROPIVE [Concomitant]
     Route: 048

REACTIONS (3)
  - Thrombocytopenia [Not Recovered/Not Resolved]
  - White blood cell count decreased [Not Recovered/Not Resolved]
  - Anaemia [Not Recovered/Not Resolved]
